FAERS Safety Report 5237940-X (Version None)
Quarter: 2007Q1

REPORT INFORMATION
  Report Type: 
  Country: None (occurrence: None)
  Receive Date: 20070209
  Receipt Date: 20070129
  Transmission Date: 20070707
  Serious: Yes (Other)
  Sender: FDA-Public Use
  Company Number: 230005M07GBR

PATIENT
  Age: 61 Year
  Sex: Female
  Weight: 76 kg

DRUGS (2)
  1. REBIF [Suspect]
     Dosage: 22, 3 IN 1 WEEKS, SUBCUTANEOUS
     Route: 058
     Dates: start: 20061204, end: 20061211
  2. PROCHLORPERAZINE MALEATE [Concomitant]

REACTIONS (4)
  - ILEOSTOMY [None]
  - NEPHRECTOMY [None]
  - SARCOMA [None]
  - SPLENECTOMY [None]
